FAERS Safety Report 6341713-4 (Version None)
Quarter: 2009Q3

REPORT INFORMATION
  Report Type: 
  Country: None (occurrence: None)
  Receive Date: 20090904
  Receipt Date: 20090827
  Transmission Date: 20100115
  Serious: Yes (Death)
  Sender: FDA-Public Use
  Company Number: IN-BAXTER-2009BH013505

PATIENT
  Age: 72 Year
  Sex: Male

DRUGS (1)
  1. DIANEAL [Suspect]
     Indication: PERITONEAL DIALYSIS
     Route: 033
     Dates: start: 20090801, end: 20090816

REACTIONS (3)
  - BLOOD BILIRUBIN INCREASED [None]
  - CARDIAC DISORDER [None]
  - HYPOALBUMINAEMIA [None]
